FAERS Safety Report 24777564 (Version 1)
Quarter: 2024Q4

REPORT INFORMATION
  Report Type: Spontaneous
  Country: CH (occurrence: CH)
  Receive Date: 20241226
  Receipt Date: 20241226
  Transmission Date: 20250115
  Serious: Yes (Other)
  Sender: BAXTER
  Company Number: None

PATIENT
  Age: 25 Year
  Sex: Female

DRUGS (40)
  1. DOXORUBICIN [Suspect]
     Active Substance: DOXORUBICIN
     Indication: Diffuse large B-cell lymphoma
     Dosage: UNK, 1 CYCLE R-CHOP
     Route: 065
     Dates: start: 20240822, end: 20241104
  2. DOXORUBICIN [Suspect]
     Active Substance: DOXORUBICIN
     Dosage: UNK, 2 CYCLE R-CHOP
     Route: 065
     Dates: start: 20240911, end: 20240911
  3. DOXORUBICIN [Suspect]
     Active Substance: DOXORUBICIN
     Dosage: UNK, 3 CYCLE R-CHOP
     Route: 065
     Dates: start: 20241002, end: 20241002
  4. DOXORUBICIN [Suspect]
     Active Substance: DOXORUBICIN
     Dosage: 90 MG, 1 TOTAL, 4 CYCLE R-CHOP
     Route: 065
     Dates: start: 20241104, end: 20241104
  5. CYCLOPHOSPHAMIDE [Suspect]
     Active Substance: CYCLOPHOSPHAMIDE
     Indication: Diffuse large B-cell lymphoma
     Dosage: UNK, 1 CYCLE R-CHOP
     Route: 065
     Dates: start: 20240822, end: 20241104
  6. CYCLOPHOSPHAMIDE [Suspect]
     Active Substance: CYCLOPHOSPHAMIDE
     Dosage: UNK, 2 CYCLE R-CHOP
     Route: 065
     Dates: start: 20240911, end: 20240911
  7. CYCLOPHOSPHAMIDE [Suspect]
     Active Substance: CYCLOPHOSPHAMIDE
     Dosage: UNK, 3 CYCLE R-CHOP
     Route: 065
     Dates: start: 20241002, end: 20241002
  8. CYCLOPHOSPHAMIDE [Suspect]
     Active Substance: CYCLOPHOSPHAMIDE
     Dosage: 1300 MG, 1 TOTAL, 4 CYCLE R-CHOP
     Route: 065
     Dates: start: 20241104, end: 20241104
  9. RITUXIMAB [Suspect]
     Active Substance: RITUXIMAB
     Indication: Diffuse large B-cell lymphoma
     Dosage: UNK, 1 CYCLE R-CHOP
     Route: 065
     Dates: start: 20240822, end: 20241104
  10. RITUXIMAB [Suspect]
     Active Substance: RITUXIMAB
     Dosage: UNK, 2 CYCLE R-CHOP
     Route: 065
     Dates: start: 20240911, end: 20240911
  11. RITUXIMAB [Suspect]
     Active Substance: RITUXIMAB
     Dosage: UNK, 3 CYCLE R-CHOP
     Route: 065
     Dates: start: 20241002, end: 20241002
  12. RITUXIMAB [Suspect]
     Active Substance: RITUXIMAB
     Dosage: 650 MG, 1 TOTAL, 4 CYCLE R-CHOP
     Route: 065
     Dates: start: 20241104, end: 20241104
  13. RITUXIMAB [Suspect]
     Active Substance: RITUXIMAB
     Dosage: 664 MG, 1 TOTAL
     Route: 065
     Dates: start: 20240606, end: 20240606
  14. RITUXIMAB [Suspect]
     Active Substance: RITUXIMAB
     Dosage: 664 MG, 1 TOTAL
     Route: 065
     Dates: start: 20240612, end: 20240612
  15. RITUXIMAB [Suspect]
     Active Substance: RITUXIMAB
     Dosage: 671 MG, 1 TOTAL
     Route: 065
     Dates: start: 20240619, end: 20240619
  16. RITUXIMAB [Suspect]
     Active Substance: RITUXIMAB
     Dosage: 664 MG, 1 TOTAL
     Route: 065
     Dates: start: 20240626, end: 20240626
  17. VINCRISTINE [Suspect]
     Active Substance: VINCRISTINE
     Indication: Diffuse large B-cell lymphoma
     Dosage: UNK, 1 CYCLE R-CHOP
     Route: 065
     Dates: start: 20240822, end: 20241104
  18. VINCRISTINE [Suspect]
     Active Substance: VINCRISTINE
     Dosage: UNK, 2 CYCLE R-CHOP
     Route: 065
     Dates: start: 20240911, end: 20240911
  19. VINCRISTINE [Suspect]
     Active Substance: VINCRISTINE
     Dosage: UNK, 3 CYCLE R-CHOP
     Route: 065
     Dates: start: 20241002, end: 20241002
  20. VINCRISTINE [Suspect]
     Active Substance: VINCRISTINE
     Dosage: 2 MG, 1 TOTAL, 4 CYCLE R-CHOP
     Route: 065
     Dates: start: 20241104, end: 20241104
  21. PREDNISONE [Suspect]
     Active Substance: PREDNISONE
     Indication: Diffuse large B-cell lymphoma
     Dosage: UNK, 1 CYCLE R-CHOP
     Route: 065
     Dates: start: 20240822
  22. PREDNISONE [Suspect]
     Active Substance: PREDNISONE
     Dosage: UNK, 2 CYCLE R-CHOP
     Route: 065
     Dates: start: 20240911
  23. PREDNISONE [Suspect]
     Active Substance: PREDNISONE
     Dosage: UNK, 3 CYCLE R-CHOP
     Route: 065
     Dates: start: 20241002
  24. PREDNISONE [Suspect]
     Active Substance: PREDNISONE
     Dosage: 71 MG, ONCE A DAY, 4 CYCLE R-CHOP
     Route: 065
     Dates: start: 20241104, end: 20241118
  25. PREDNISONE [Suspect]
     Active Substance: PREDNISONE
     Dosage: 10 MG, ONCE A DAY, LONG-TERM TREATMENT AT HOME
     Route: 065
  26. CLEMASTINE FUMARATE [Concomitant]
     Active Substance: CLEMASTINE FUMARATE
     Dosage: 2 MG, 1 TOTAL
     Route: 040
     Dates: start: 20241104, end: 20241104
  27. PALONOSETRON [Concomitant]
     Active Substance: PALONOSETRON
     Dosage: 0.25 MG, 1 TOTAL
     Route: 040
     Dates: start: 20241104, end: 20241104
  28. ACETAMINOPHEN [Concomitant]
     Active Substance: ACETAMINOPHEN
     Dosage: 1 G, 1 TOTAL
     Route: 048
     Dates: start: 20241104, end: 20241104
  29. ACETAMINOPHEN [Concomitant]
     Active Substance: ACETAMINOPHEN
     Dosage: 1000 MG, AS NECESSARY
     Route: 048
  30. ARANESP [Concomitant]
     Active Substance: DARBEPOETIN ALFA
     Dosage: 500 MG, 1 TOTAL, (NAME OF HOLDER/APPLICANT: AMGEN SWITZERLAND AG)
     Route: 058
     Dates: start: 20241104, end: 20241104
  31. ARANESP [Concomitant]
     Active Substance: DARBEPOETIN ALFA
     Dosage: 500 MG, EVERY 3 WEEKS, (NAME OF HOLDER/APPLICANT: AMGEN SWITZERLAND AG)
     Route: 058
  32. ENVARSUS XR [Concomitant]
     Active Substance: TACROLIMUS
     Dosage: 5 MG, ONCE A DAY, MORNING, (NAME OF HOLDER/APPLICANT: CHIESI)
     Route: 065
  33. VALTREX [Concomitant]
     Active Substance: VALACYCLOVIR HYDROCHLORIDE
     Dosage: 500 MG, EVERY 12 H, (NAME OF HOLDER/APPLICANT: GLAXOSMITHKLINE)
     Route: 065
  34. BACTRIM [Concomitant]
     Active Substance: SULFAMETHOXAZOLE\TRIMETHOPRIM
     Dosage: 160 MG 3X/WEEK, EVERY 48 H
     Route: 065
  35. VITAMIN D3 [Concomitant]
     Active Substance: CHOLECALCIFEROL
     Dosage: 1000 DOSAGE FORM, ONCE A DAY, MORNING
     Route: 065
  36. ESOMEPRAZOLE [Concomitant]
     Active Substance: ESOMEPRAZOLE
     Dosage: 20 MG, ONCE A DAY, (NAME OF HOLDER/APPLICANT: ASTRAZENECA AG)
     Route: 065
  37. MELATONIN [Concomitant]
     Active Substance: MELATONIN
     Dosage: 1.9 MG, ONCE A DAY
     Route: 065
  38. LACTITOL [Concomitant]
     Active Substance: LACTITOL
     Dosage: UNK, AS NECESSARY
     Route: 065
  39. ZOFRAN [Concomitant]
     Active Substance: ONDANSETRON HYDROCHLORIDE
     Dosage: 8 MG MAX. 3X/DAY, AS NECESSARY, (NAME OF HOLDER/APPLICANT: GLAXOSMITHKLINE)
     Route: 065
  40. Paspertin [Concomitant]
     Dosage: 10 MG MAX. 3X/DAY, AS NECESSARY, (NAME OF HOLDER/APPLICANT: SOLVAY PHARMA)
     Route: 065

REACTIONS (8)
  - Agranulocytosis [Recovered/Resolved]
  - Agranulocytosis [Recovered/Resolved]
  - Agranulocytosis [Recovered/Resolved]
  - Hypochromic anaemia [Recovering/Resolving]
  - Thrombocytopenia [Recovered/Resolved]
  - Escherichia urinary tract infection [Recovered/Resolved]
  - Staphylococcal sepsis [Not Recovered/Not Resolved]
  - Rhinovirus infection [Not Recovered/Not Resolved]

NARRATIVE: CASE EVENT DATE: 20240901
